FAERS Safety Report 9819412 (Version 1)
Quarter: 2014Q1

REPORT INFORMATION
  Report Type: Spontaneous
  Country: AU (occurrence: None)
  Receive Date: 20140113
  Receipt Date: 20140113
  Transmission Date: 20141002
  Serious: Yes (Other)
  Sender: FDA-Public Use
  Company Number: 2013000399

PATIENT
  Sex: Female

DRUGS (1)
  1. ACEON [Suspect]
     Indication: PRODUCT USED FOR UNKNOWN INDICATION

REACTIONS (5)
  - Fatigue [None]
  - Somnolence [None]
  - Swelling face [None]
  - Dizziness [None]
  - Swollen tongue [None]
